FAERS Safety Report 4685551-7 (Version None)
Quarter: 2005Q2

REPORT INFORMATION
  Report Type: 
  Country: None (occurrence: None)
  Receive Date: 20050527
  Receipt Date: 20050519
  Transmission Date: 20051028
  Serious: Yes (Hospitalization, Other)
  Sender: FDA-Public Use
  Company Number: FRWYE801503JUN04

PATIENT
  Age: 33 Year
  Sex: Male

DRUGS (7)
  1. REFACTO [Suspect]
     Indication: FACTOR VIII DEFICIENCY
     Dosage: SEE IMAGE, INTRAVENOUS
     Route: 042
     Dates: start: 20010215, end: 20010101
  2. REFACTO [Suspect]
     Indication: FACTOR VIII DEFICIENCY
     Dosage: SEE IMAGE, INTRAVENOUS
     Route: 042
     Dates: start: 20040323, end: 20040323
  3. REFACTO [Suspect]
     Indication: FACTOR VIII DEFICIENCY
     Dosage: SEE IMAGE, INTRAVENOUS
     Route: 042
     Dates: start: 20040324, end: 20040329
  4. REFACTO [Suspect]
     Indication: FACTOR VIII DEFICIENCY
     Dosage: SEE IMAGE, INTRAVENOUS
     Route: 042
     Dates: start: 20040330, end: 20040330
  5. REFACTO [Suspect]
     Indication: FACTOR VIII DEFICIENCY
     Dosage: SEE IMAGE, INTRAVENOUS
     Route: 042
     Dates: start: 20040331, end: 20040402
  6. REFACTO [Suspect]
     Indication: FACTOR VIII DEFICIENCY
     Dosage: SEE IMAGE, INTRAVENOUS
     Route: 042
     Dates: start: 20040403, end: 20040407
  7. AUGMENTIN ORAL (AMOXICILLIN TRIHYDRATE/CLAVULANATE POTASSIUM) [Concomitant]

REACTIONS (4)
  - ANTI FACTOR VIII ANTIBODY POSITIVE [None]
  - HAEMATOMA [None]
  - MUSCLE HAEMORRHAGE [None]
  - TONGUE HAEMORRHAGE [None]
